FAERS Safety Report 6871522-9 (Version None)
Quarter: 2010Q3

REPORT INFORMATION
  Report Type: 
  Country: None (occurrence: None)
  Receive Date: 20100723
  Receipt Date: 20100709
  Transmission Date: 20110219
  Serious: Yes (Hospitalization)
  Sender: FDA-Public Use
  Company Number: PHHY2010US45874

PATIENT
  Age: 9 Year
  Sex: Male
  Weight: 37.18 kg

DRUGS (1)
  1. GLEEVEC [Suspect]
     Dosage: 400 MG, UNK
     Route: 048
     Dates: start: 20100226

REACTIONS (2)
  - ORAL DISCOMFORT [None]
  - OROPHARYNGEAL PAIN [None]
